FAERS Safety Report 11377806 (Version 1)
Quarter: 2015Q3

REPORT INFORMATION
  Report Type: Spontaneous
  Country: US (occurrence: US)
  Receive Date: 20150811
  Receipt Date: 20150811
  Transmission Date: 20151125
  Serious: No
  Sender: FDA-Public Use
  Company Number: US-ELI_LILLY_AND_COMPANY-US200908005931

PATIENT
  Sex: Female

DRUGS (12)
  1. HUMULIN 70/30 [Suspect]
     Active Substance: INSULIN HUMAN
     Dosage: 30 U, 2/D
  2. LUMIGAN [Concomitant]
     Active Substance: BIMATOPROST
  3. AVALIDE [Concomitant]
     Active Substance: HYDROCHLOROTHIAZIDE\IRBESARTAN
     Dosage: 25 MG, DAILY (1/D)
  4. METOCLOPRAMIDE. [Concomitant]
     Active Substance: METOCLOPRAMIDE
     Dosage: 5 MG, UNK
  5. HUMULIN 70/30 [Suspect]
     Active Substance: INSULIN HUMAN
     Dosage: UNK, AS NEEDED
  6. ASPIRIN. [Concomitant]
     Active Substance: ASPIRIN
     Dosage: 81 MG, DAILY (1/D)
  7. PROCRIT [Concomitant]
     Active Substance: ERYTHROPOIETIN
     Dosage: UNK, 2/M
  8. CARDIZEM [Concomitant]
     Active Substance: DILTIAZEM HYDROCHLORIDE
  9. OMEPRAZOLE. [Concomitant]
     Active Substance: OMEPRAZOLE
     Dosage: 20 MG, DAILY (1/D)
  10. ZETIA [Concomitant]
     Active Substance: EZETIMIBE
     Dosage: 10 MG, DAILY (1/D)
  11. COREG [Concomitant]
     Active Substance: CARVEDILOL
     Dosage: 25 MG, 2/D
  12. CRESTOR [Concomitant]
     Active Substance: ROSUVASTATIN CALCIUM
     Dosage: 20 MG, UNK

REACTIONS (6)
  - Night sweats [Not Recovered/Not Resolved]
  - Blood glucose decreased [Not Recovered/Not Resolved]
  - Blood glucose increased [Not Recovered/Not Resolved]
  - Pollakiuria [Not Recovered/Not Resolved]
  - Decreased appetite [Not Recovered/Not Resolved]
  - Fatigue [Not Recovered/Not Resolved]
